FAERS Safety Report 11862403 (Version 3)
Quarter: 2017Q2

REPORT INFORMATION
  Report Type: Report from Study
  Country: FR (occurrence: FR)
  Receive Date: 20151223
  Receipt Date: 20170406
  Transmission Date: 20170829
  Serious: Yes (Other)
  Sender: FDA-Public Use
  Company Number: FR-ROCHE-1682117

PATIENT
  Age: 84 Year
  Sex: Male

DRUGS (6)
  1. RANIBIZUMAB [Suspect]
     Active Substance: RANIBIZUMAB
     Dosage: UNK (INJECTION RIGHT EYE)
     Route: 031
     Dates: start: 20150320
  2. RANIBIZUMAB [Suspect]
     Active Substance: RANIBIZUMAB
     Dosage: UNK (INJECTION RIGHT EYE)
     Route: 031
     Dates: start: 20150220, end: 20150220
  3. RANIBIZUMAB [Suspect]
     Active Substance: RANIBIZUMAB
     Indication: NEOVASCULAR AGE-RELATED MACULAR DEGENERATION
     Dosage: UNK (INJECTION RIGHT EYE)
     Route: 031
     Dates: start: 20141223
  4. RANIBIZUMAB [Suspect]
     Active Substance: RANIBIZUMAB
     Dosage: UNK (INJECTION RIGHT EYE)
     Route: 031
     Dates: start: 20150123
  5. RANIBIZUMAB [Suspect]
     Active Substance: RANIBIZUMAB
     Dosage: UNK (INJECTION RIGHT EYE)
     Route: 031
     Dates: start: 20150701
  6. RANIBIZUMAB [Suspect]
     Active Substance: RANIBIZUMAB
     Dosage: UNK (INJECTION RIGHT EYE)
     Route: 031
     Dates: start: 20150417

REACTIONS (2)
  - Age-related macular degeneration [Recovered/Resolved with Sequelae]
  - Retinal haemorrhage [Recovered/Resolved with Sequelae]

NARRATIVE: CASE EVENT DATE: 20150319
